FAERS Safety Report 7907401-5 (Version None)
Quarter: 2011Q4

REPORT INFORMATION
  Report Type: 
  Country: None (occurrence: None)
  Receive Date: 20111110
  Receipt Date: 20111104
  Transmission Date: 20120403
  Serious: Yes (Other)
  Sender: FDA-Public Use
  Company Number: US-B.I. PHARMACEUTICALS,INC./RIDGEFIELD-2011-BP-25629BP

PATIENT
  Sex: Female

DRUGS (3)
  1. PRADAXA [Suspect]
     Indication: THROMBOSIS PROPHYLAXIS
     Dosage: 150 MG
  2. PRADAXA [Suspect]
     Indication: PULMONARY EMBOLISM
  3. TOPROL-XL [Concomitant]
     Indication: SUPRAVENTRICULAR TACHYCARDIA

REACTIONS (1)
  - THROMBOSIS [None]
